FAERS Safety Report 8476154-7 (Version None)
Quarter: 2012Q2

REPORT INFORMATION
  Report Type: 
  Country: None (occurrence: None)
  Receive Date: 20120628
  Receipt Date: 20120619
  Transmission Date: 20120825
  Serious: Yes (Hospitalization)
  Sender: FDA-Public Use
  Company Number: US-ELI_LILLY_AND_COMPANY-US201205003553

PATIENT
  Sex: Female
  Weight: 53.061 kg

DRUGS (10)
  1. FIBERCON [Concomitant]
     Dosage: 20 UG, UNKNOWN
     Route: 058
     Dates: start: 20120201
  2. FORTEO [Suspect]
     Indication: OSTEOPOROSIS
     Dosage: UNK, UNKNOWN
  3. ENALAPRIL MALEATE [Concomitant]
  4. CALCIUM [Concomitant]
  5. LOVASTATIN [Concomitant]
  6. METOPROLOL TARTRATE [Concomitant]
  7. EVISTA [Suspect]
  8. OMEPRAZOLE [Concomitant]
  9. ASPIRIN [Concomitant]
  10. TRAMADOL HCL [Concomitant]

REACTIONS (1)
  - CHOLECYSTITIS [None]
